FAERS Safety Report 5718289-5 (Version None)
Quarter: 2008Q2

REPORT INFORMATION
  Report Type: 
  Country: None (occurrence: None)
  Receive Date: 20080425
  Receipt Date: 20070524
  Transmission Date: 20081010
  Serious: No
  Sender: FDA-Public Use
  Company Number: US-ASTRAZENECA-2007UW07819

PATIENT
  Sex: Male
  Weight: 74.8 kg

DRUGS (14)
  1. ZOMIG [Suspect]
     Indication: MIGRAINE
     Route: 048
  2. ZOMIG [Suspect]
     Route: 048
     Dates: start: 20070329
  3. GABAPENTIN [Concomitant]
  4. PHENOBARBITAL TAB [Concomitant]
  5. SINGULAIR [Concomitant]
  6. KLONOPIN [Concomitant]
  7. DARVON [Concomitant]
  8. ULTRACEPT [Concomitant]
  9. FLEXERIL [Concomitant]
  10. RESTORIL [Concomitant]
  11. DIPHENHYDRAMINE HCL [Concomitant]
  12. LOPERAMIDE HCL [Concomitant]
  13. AXERT [Concomitant]
  14. VITAMIN B-12 [Concomitant]
     Dosage: EVERY TWO WEEKS

REACTIONS (2)
  - THERAPEUTIC RESPONSE DECREASED [None]
  - THERAPEUTIC RESPONSE UNEXPECTED [None]
